FAERS Safety Report 5831605-9 (Version None)
Quarter: 2008Q3

REPORT INFORMATION
  Report Type: 
  Country: None (occurrence: None)
  Receive Date: 20080730
  Receipt Date: 20080715
  Transmission Date: 20090109
  Serious: Yes (Death, Hospitalization)
  Sender: FDA-Public Use
  Company Number: 2008AL008230

PATIENT
  Age: 85 Year
  Sex: Male
  Weight: 63.5036 kg

DRUGS (1)
  1. DIGOXIN [Suspect]
     Indication: CARDIAC DISORDER
     Dosage: 0.25MG DAILY PO
     Route: 048

REACTIONS (5)
  - CARDIAC DISORDER [None]
  - CONDITION AGGRAVATED [None]
  - DIARRHOEA [None]
  - MALAISE [None]
  - NAUSEA [None]
